FAERS Safety Report 9012293 (Version 1)
Quarter: 2013Q1

REPORT INFORMATION
  Report Type: Spontaneous
  Country: BR (occurrence: BR)
  Receive Date: 20130114
  Receipt Date: 20130114
  Transmission Date: 20140127
  Serious: Yes (Hospitalization)
  Sender: FDA-Public Use
  Company Number: BR-BAXTER-2013BAX001113

PATIENT
  Age: 17 Year
  Sex: Male

DRUGS (8)
  1. GENUXAL [Suspect]
     Indication: BURKITT^S LYMPHOMA
     Route: 065
  2. HOLOXANE [Suspect]
     Indication: BURKITT^S LYMPHOMA
     Route: 065
  3. ETOPOSIDE [Suspect]
     Indication: BURKITT^S LYMPHOMA
     Route: 065
  4. VINCRISTINE [Suspect]
     Indication: BURKITT^S LYMPHOMA
     Route: 065
  5. METHOTREXATE [Suspect]
     Indication: BURKITT^S LYMPHOMA
     Route: 065
  6. CARBOPLATIN [Suspect]
     Indication: BURKITT^S LYMPHOMA
     Route: 065
  7. DOXORUBICIN [Suspect]
     Indication: BURKITT^S LYMPHOMA
     Route: 065
  8. PREDNISONE [Suspect]
     Indication: BURKITT^S LYMPHOMA
     Route: 065

REACTIONS (2)
  - Febrile neutropenia [Unknown]
  - Lung infection [Recovering/Resolving]
